FAERS Safety Report 8916655 (Version 1)
Quarter: 2012Q4

REPORT INFORMATION
  Report Type: 
  Country: DE (occurrence: DE)
  Receive Date: 20121120
  Receipt Date: 20121120
  Transmission Date: 20130627
  Serious: Yes (Other)
  Sender: FDA-Public Use
  Company Number: DE-BAYER-2012-121272

PATIENT
  Age: 80 Year
  Sex: Male
  Weight: 90 kg

DRUGS (1)
  1. ULTRAVIST [Suspect]
     Indication: EMBOLUS MESENTERIC
     Dosage: 135 ml, ONCE
     Route: 042
     Dates: start: 20120704, end: 20120704

REACTIONS (4)
  - Convulsion [Unknown]
  - Enuresis [Unknown]
  - Loss of consciousness [Unknown]
  - Vomiting [Unknown]
